FAERS Safety Report 8584568-X (Version None)
Quarter: 2012Q3

REPORT INFORMATION
  Report Type: 
  Country: None (occurrence: None)
  Receive Date: 20120810
  Receipt Date: 20120710
  Transmission Date: 20120928
  Serious: Yes (Other)
  Sender: FDA-Public Use
  Company Number: FR-009507513-2012SP028859

PATIENT
  Age: 48 Year
  Sex: Female

DRUGS (6)
  1. VICTRELIS [Suspect]
     Indication: HEPATITIS C
     Dosage: 800 MG, TID
     Dates: start: 20110530, end: 20120402
  2. BETASELEN [Concomitant]
     Indication: FATIGUE
     Dates: start: 20070101
  3. FOLIC ACID [Concomitant]
     Indication: VITAMIN SUPPLEMENTATION
     Dosage: 2 DF, QD
     Dates: start: 20110411
  4. COPEGUS [Suspect]
     Indication: HEPATITIS C
     Dosage: 1000 MG, QD
     Dates: start: 20110502, end: 20120402
  5. DELURSAN [Concomitant]
     Indication: FATIGUE
     Dates: start: 20070101
  6. PEGASYS [Suspect]
     Indication: HEPATITIS C
     Dosage: 150 ?G, QW
     Dates: start: 20110502, end: 20120402

REACTIONS (2)
  - DYSAESTHESIA [None]
  - PORPHYRIA NON-ACUTE [None]
